FAERS Safety Report 6745954-3 (Version None)
Quarter: 2010Q2

REPORT INFORMATION
  Report Type: 
  Country: None (occurrence: None)
  Receive Date: 20100528
  Receipt Date: 20100521
  Transmission Date: 20101027
  Serious: Yes (Hospitalization)
  Sender: FDA-Public Use
  Company Number: JP-ASTRAZENECA-2010SE23853

PATIENT

DRUGS (1)
  1. ECARD COMBINATION [Suspect]
     Indication: HYPERTENSION
     Dosage: 1 DF DAILY
     Route: 048
     Dates: start: 20091007, end: 20100401

REACTIONS (2)
  - FALL [None]
  - PHOTOSENSITIVITY REACTION [None]
